FAERS Safety Report 13689509 (Version 1)
Quarter: 2017Q2

REPORT INFORMATION
  Report Type: Spontaneous
  Country: None (occurrence: US)
  Receive Date: 20170623
  Receipt Date: 20170623
  Transmission Date: 20170830
  Serious: Yes (Hospitalization)
  Sender: FDA-Public Use
  Company Number: None

PATIENT
  Age: 67 Year
  Sex: Male
  Weight: 74.16 kg

DRUGS (1)
  1. DALTEPARIN 150 IU/KG [Suspect]
     Active Substance: DALTEPARIN
     Indication: DEEP VEIN THROMBOSIS
     Route: 058
     Dates: start: 20161122

REACTIONS (5)
  - Vomiting [None]
  - Hyponatraemia [None]
  - Inappropriate antidiuretic hormone secretion [None]
  - Hypothyroidism [None]
  - Lymphocyte count decreased [None]

NARRATIVE: CASE EVENT DATE: 20170228
